FAERS Safety Report 8356347 (Version 6)
Quarter: 2014Q1

REPORT INFORMATION
  Report Type: Spontaneous
  Country: US (occurrence: US)
  Receive Date: 20120126
  Receipt Date: 20140314
  Transmission Date: 20141002
  Serious: Yes (Life-Threatening)
  Sender: FDA-Public Use
  Company Number: US-JHP PHARMACEUTICALS, LLC-JHP201200024

PATIENT
  Age: 50 Year
  Sex: Female

DRUGS (1)
  1. DANTRIUM [Suspect]
     Indication: CEREBRAL VASOCONSTRICTION
     Dosage: 1.25 MG/KG EVERY 6 HOURS, TOTAL=2072 MG
     Route: 042

REACTIONS (6)
  - Acute myocardial infarction [Recovered/Resolved]
  - Urinary tract infection [Recovered/Resolved]
  - Infusion site extravasation [Recovered/Resolved]
  - Pyrexia [Recovered/Resolved]
  - Hyponatraemia [Recovered/Resolved]
  - Off label use [Recovered/Resolved]
